FAERS Safety Report 19592657 (Version 1)
Quarter: 2021Q3

REPORT INFORMATION
  Report Type: Spontaneous
  Country: US (occurrence: US)
  Receive Date: 20210722
  Receipt Date: 20210722
  Transmission Date: 20211014
  Serious: No
  Sender: FDA-Public Use
  Company Number: US-JNJFOC-20210736337

PATIENT
  Sex: Male

DRUGS (2)
  1. RILPIVIRINE [Suspect]
     Active Substance: RILPIVIRINE
     Indication: PRODUCT USED FOR UNKNOWN INDICATION
     Route: 030
  2. CABOTEGRAVIR [Concomitant]
     Active Substance: CABOTEGRAVIR
     Route: 065

REACTIONS (1)
  - Inappropriate schedule of product administration [Unknown]
